FAERS Safety Report 19884449 (Version 1)
Quarter: 2021Q3

REPORT INFORMATION
  Report Type: Spontaneous
  Country: US (occurrence: US)
  Receive Date: 20210923
  Receipt Date: 20210923
  Transmission Date: 20211014
  Serious: Yes (Disabling)
  Sender: FDA-Public Use
  Company Number: None

PATIENT

DRUGS (1)
  1. NEUTROGENA HEALTHY DEFENSE MOISTURIZER SPF 50 [Suspect]
     Active Substance: AVOBENZONE\HOMOSALATE\OCTISALATE\OCTOCRYLENE\OXYBENZONE

REACTIONS (4)
  - Scar [None]
  - Vocal cord dysfunction [None]
  - Malignant melanoma [None]
  - Depression [None]

NARRATIVE: CASE EVENT DATE: 20210721
